FAERS Safety Report 8769322 (Version 2)
Quarter: 2012Q4

REPORT INFORMATION
  Report Type: 
  Country: US (occurrence: US)
  Receive Date: 20120904
  Receipt Date: 20120907
  Transmission Date: 20130627
  Serious: Yes (Hospitalization)
  Sender: FDA-Public Use
  Company Number: US-BAXTER-2012BAX015657

PATIENT
  Age: 78 Year
  Sex: Male

DRUGS (2)
  1. DIANEAL LOW CALCIUM [Suspect]
     Indication: END STAGE RENAL DISEASE (ESRD)
     Route: 033
  2. DIANEAL LOW CALCIUM (ULTRABAG) [Suspect]
     Indication: END STAGE RENAL DISEASE (ESRD)
     Route: 033

REACTIONS (2)
  - Cerebrovascular accident [Recovered/Resolved]
  - Somnolence [Recovered/Resolved]
